FAERS Safety Report 16479054 (Version 1)
Quarter: 2019Q2

REPORT INFORMATION
  Report Type: Spontaneous
  Country: US (occurrence: US)
  Receive Date: 20190626
  Receipt Date: 20190626
  Transmission Date: 20190711
  Serious: No
  Sender: FDA-Public Use
  Company Number: US-ELI_LILLY_AND_COMPANY-US201906009890

PATIENT
  Sex: Male
  Weight: 95.24 kg

DRUGS (4)
  1. CIALIS [Suspect]
     Active Substance: TADALAFIL
     Indication: HYPERTENSION
  2. LISINOPRIL. [Concomitant]
     Active Substance: LISINOPRIL
     Indication: HYPERTENSION
  3. HYDROCHLOROTHIAZIDE. [Concomitant]
     Active Substance: HYDROCHLOROTHIAZIDE
     Indication: HYPERTENSION
  4. CIALIS [Suspect]
     Active Substance: TADALAFIL
     Indication: ERECTILE DYSFUNCTION
     Dosage: 5 MG, DAILY
     Route: 048

REACTIONS (7)
  - Spinal disorder [Recovering/Resolving]
  - Sensory loss [Recovered/Resolved]
  - Paraesthesia [Recovered/Resolved]
  - Blood pressure increased [Recovered/Resolved]
  - Expired product administered [Unknown]
  - Intervertebral disc compression [Recovering/Resolving]
  - Pain [Recovered/Resolved]
